FAERS Safety Report 9170072 (Version 1)
Quarter: 2013Q1

REPORT INFORMATION
  Report Type: Spontaneous
  Country: GB (occurrence: None)
  Receive Date: 20130311
  Receipt Date: 20130311
  Transmission Date: 20140127
  Serious: Yes (Life-Threatening, Other)
  Sender: FDA-Public Use
  Company Number: SYM-2013-01447

PATIENT
  Age: 62 Year
  Sex: Male

DRUGS (4)
  1. ADIZEM [Suspect]
     Indication: PRODUCT USED FOR UNKNOWN INDICATION
     Route: 048
  2. ATORVASTATIN [Suspect]
     Indication: PRODUCT USED FOR UNKNOWN INDICATION
  3. ISOSORBIDE MONONITRATE [Suspect]
     Indication: PRODUCT USED FOR UNKNOWN INDICATION
  4. ASPIRIN [Suspect]
     Indication: PRODUCT USED FOR UNKNOWN INDICATION

REACTIONS (10)
  - Hypotension [None]
  - Intentional overdose [None]
  - Vision blurred [None]
  - Gait disturbance [None]
  - Vomiting [None]
  - Acidosis [None]
  - Hyperkalaemia [None]
  - Renal impairment [None]
  - Lactic acidosis [None]
  - Blood glucose increased [None]
